FAERS Safety Report 9245601 (Version 1)
Quarter: 2013Q2

REPORT INFORMATION
  Report Type: Report from Study
  Country: GB (occurrence: GB)
  Receive Date: 20130422
  Receipt Date: 20130422
  Transmission Date: 20140414
  Serious: Yes (Death, Life-Threatening, Hospitalization)
  Sender: FDA-Public Use
  Company Number: GB-INCYTE CORPORATION-2013IN000728

PATIENT
  Sex: 0

DRUGS (2)
  1. INC424 [Suspect]
     Indication: MYELOFIBROSIS
     Dosage: 10 MG, BID
     Route: 048
     Dates: start: 20120305, end: 20130325
  2. ORAMORPH [Concomitant]
     Dosage: UNK
     Dates: start: 20130403

REACTIONS (3)
  - Drug withdrawal syndrome [Fatal]
  - Sepsis [Fatal]
  - Cardiac arrest [Fatal]
